FAERS Safety Report 13060248 (Version 1)
Quarter: 2016Q4

REPORT INFORMATION
  Report Type: Spontaneous
  Country: US (occurrence: US)
  Receive Date: 20161223
  Receipt Date: 20161223
  Transmission Date: 20170207
  Serious: No
  Sender: FDA-Public Use
  Company Number: US-ASTRAZENECA-2016SF32468

PATIENT
  Weight: 3.2 kg

DRUGS (4)
  1. SYNAGIS [Suspect]
     Active Substance: PALIVIZUMAB
     Indication: OXYGEN SUPPLEMENTATION
     Dosage: 0.48MG UNKNOWN
     Route: 030
  2. SYNAGIS [Suspect]
     Active Substance: PALIVIZUMAB
     Indication: PULMONARY HYPERTENSION
     Dosage: 0.48MG UNKNOWN
     Route: 030
  3. SYNAGIS [Suspect]
     Active Substance: PALIVIZUMAB
     Indication: LARGE FOR DATES BABY
     Dosage: 0.48MG UNKNOWN
     Route: 030
  4. SYNAGIS [Suspect]
     Active Substance: PALIVIZUMAB
     Indication: CHRONIC OBSTRUCTIVE PULMONARY DISEASE
     Dosage: 0.48MG UNKNOWN
     Route: 030

REACTIONS (3)
  - Off label use [Unknown]
  - Product use issue [Unknown]
  - Respiratory syncytial virus infection [Unknown]
